FAERS Safety Report 18986880 (Version 1)
Quarter: 2021Q1

REPORT INFORMATION
  Report Type: Spontaneous
  Country: US (occurrence: US)
  Receive Date: 20210309
  Receipt Date: 20210309
  Transmission Date: 20210420
  Serious: No
  Sender: FDA-Public Use
  Company Number: US-BAYER-2021-098371

PATIENT
  Age: 82 Year
  Sex: Female

DRUGS (2)
  1. STIVARGA [Suspect]
     Active Substance: REGORAFENIB
     Indication: APPENDIX CANCER
     Dosage: DAILY DOSE 80 MG
     Dates: start: 20210107
  2. STIVARGA [Suspect]
     Active Substance: REGORAFENIB
     Indication: APPENDIX CANCER
     Dosage: DAILY DOSE 40 MG

REACTIONS (3)
  - Product use in unapproved indication [None]
  - Off label use [None]
  - Blood bilirubin increased [Not Recovered/Not Resolved]

NARRATIVE: CASE EVENT DATE: 20210107
